FAERS Safety Report 11552342 (Version 1)
Quarter: 2015Q3

REPORT INFORMATION
  Report Type: Spontaneous
  Country: US (occurrence: None)
  Receive Date: 20150924
  Receipt Date: 20150924
  Transmission Date: 20151125
  Serious: Yes (Disabling)
  Sender: FDA-Public Use
  Company Number: None

PATIENT
  Age: 50 Year
  Sex: Female
  Weight: 56.7 kg

DRUGS (5)
  1. CIPROFLOXACIN. [Suspect]
     Active Substance: CIPROFLOXACIN
     Indication: INFLAMMATION
     Dosage: 1 PILL TWICE DAILY
     Route: 048
     Dates: start: 20150918, end: 20150922
  2. CALCIUM CITRATE WITH VITAMIN D [Concomitant]
     Active Substance: CALCIUM CITRATE\VITAMIN D
  3. MULTIVITAMIN [Concomitant]
     Active Substance: VITAMINS
  4. CIPROFLOXACIN. [Suspect]
     Active Substance: CIPROFLOXACIN
     Indication: RENAL DISORDER
     Dosage: 1 PILL TWICE DAILY
     Route: 048
     Dates: start: 20150918, end: 20150922
  5. CIPROFLOXACIN. [Suspect]
     Active Substance: CIPROFLOXACIN
     Indication: OBSTRUCTION
     Dosage: 1 PILL TWICE DAILY
     Route: 048
     Dates: start: 20150918, end: 20150922

REACTIONS (6)
  - Dyspnoea [None]
  - Abdominal distension [None]
  - Gait disturbance [None]
  - Hypoaesthesia [None]
  - Chills [None]
  - Nerve injury [None]

NARRATIVE: CASE EVENT DATE: 20150919
